FAERS Safety Report 21925056 (Version 2)
Quarter: 2023Q1

REPORT INFORMATION
  Report Type: Spontaneous
  Country: JP (occurrence: None)
  Receive Date: 20230130
  Receipt Date: 20230306
  Transmission Date: 20230418
  Serious: Yes (Death)
  Sender: FDA-Public Use
  Company Number: 2023A023271

PATIENT
  Age: 81 Year
  Sex: Male

DRUGS (6)
  1. ONDEXXYA [Suspect]
     Active Substance: ANDEXANET ALFA
     Indication: Extradural haematoma
     Dosage: 800 MG INTRAVENOUSLY AT A RATE OF 30 MG/MIN FOLLOWED BY 960 MG AT 8 MG/MIN FOR 2 HOURS.1760.0MG U...
     Route: 042
     Dates: start: 20221117
  2. ONDEXXYA [Suspect]
     Active Substance: ANDEXANET ALFA
     Indication: Post procedural haemorrhage
     Dosage: 800 MG INTRAVENOUSLY AT A RATE OF 30 MG/MIN FOLLOWED BY 960 MG AT 8 MG/MIN FOR 2 HOURS.1760.0MG U...
     Route: 042
     Dates: start: 20221117
  3. ONDEXXYA [Suspect]
     Active Substance: ANDEXANET ALFA
     Indication: Extradural haematoma
     Dosage: METHOD A1200.0MG UNKNOWN
     Route: 042
     Dates: start: 20221201
  4. ONDEXXYA [Suspect]
     Active Substance: ANDEXANET ALFA
     Indication: Post procedural haemorrhage
     Dosage: METHOD A1200.0MG UNKNOWN
     Route: 042
     Dates: start: 20221201
  5. EDOXABAN TOSYLATE [Suspect]
     Active Substance: EDOXABAN TOSYLATE
     Dosage: DOSE UNKNOWN
  6. EDOXABAN TOSYLATE [Suspect]
     Active Substance: EDOXABAN TOSYLATE
     Dosage: NUMBER OF SEPARATE DOSAGES UNKNOWN
     Dates: start: 20221120, end: 20221201

REACTIONS (1)
  - Post procedural haemorrhage [Fatal]

NARRATIVE: CASE EVENT DATE: 20221201
